FAERS Safety Report 10385864 (Version 1)
Quarter: 2014Q3

REPORT INFORMATION
  Report Type: Spontaneous
  Country: US (occurrence: US)
  Receive Date: 20140814
  Receipt Date: 20140814
  Transmission Date: 20150326
  Serious: Yes (Hospitalization, Other)
  Sender: FDA-Public Use
  Company Number: US-009507513-1408USA003569

PATIENT
  Sex: Female
  Weight: 61.22 kg

DRUGS (1)
  1. NUVARING [Suspect]
     Active Substance: ETHINYL ESTRADIOL\ETONOGESTREL
     Indication: MENSTRUATION IRREGULAR
     Dosage: 0.12-0.015 MG/24HR
     Route: 067
     Dates: start: 201306, end: 20130902

REACTIONS (27)
  - Hypokalaemia [Unknown]
  - Ovarian cyst ruptured [Unknown]
  - May-Thurner syndrome [Unknown]
  - Haemoptysis [Recovered/Resolved]
  - Ovarian cyst [Unknown]
  - Vaginal haemorrhage [Unknown]
  - Back pain [Unknown]
  - Eczema [Unknown]
  - Ovarian cyst ruptured [Unknown]
  - Polycystic ovaries [Unknown]
  - Upper respiratory tract infection [Unknown]
  - Dysmenorrhoea [Unknown]
  - Pelvic pain [Recovered/Resolved]
  - Hypercoagulation [Unknown]
  - Factor V Leiden mutation [Unknown]
  - Dyspareunia [Unknown]
  - Acne [Unknown]
  - Off label use [Unknown]
  - Pneumonia [Unknown]
  - Haemorrhoids [Unknown]
  - Constipation [Recovering/Resolving]
  - Pulmonary embolism [Unknown]
  - Sciatica [Unknown]
  - Hepatic steatosis [Unknown]
  - Rectal haemorrhage [Unknown]
  - Anaemia [Unknown]
  - Fatigue [Unknown]

NARRATIVE: CASE EVENT DATE: 201306
